FAERS Safety Report 5847596-0 (Version None)
Quarter: 2008Q3

REPORT INFORMATION
  Report Type: 
  Country: None (occurrence: None)
  Receive Date: 20080818
  Receipt Date: 20080812
  Transmission Date: 20090109
  Serious: Yes (Other)
  Sender: FDA-Public Use
  Company Number: FR-SP-2008-02549

PATIENT
  Sex: Male

DRUGS (1)
  1. BCG - IT (CONNAUGHT) [Suspect]
     Indication: BLADDER CANCER
     Route: 043

REACTIONS (2)
  - PROSTATE CANCER [None]
  - PROSTATITIS [None]
